FAERS Safety Report 22118533 (Version 1)
Quarter: 2023Q1

REPORT INFORMATION
  Report Type: Report from Study
  Country: US (occurrence: US)
  Receive Date: 20230321
  Receipt Date: 20230321
  Transmission Date: 20230417
  Serious: Yes (Hospitalization, Other)
  Sender: FDA-Public Use
  Company Number: US-ORPHANEU-2023001584

PATIENT

DRUGS (2)
  1. CARBAGLU [Suspect]
     Active Substance: CARGLUMIC ACID
     Indication: Product used for unknown indication
     Route: 064
  2. CARBAGLU [Suspect]
     Active Substance: CARGLUMIC ACID
     Dosage: UNK
     Route: 063

REACTIONS (3)
  - Respiratory distress [Unknown]
  - Foetal exposure during pregnancy [Recovered/Resolved]
  - Exposure via breast milk [Recovered/Resolved]
